FAERS Safety Report 22751591 (Version 3)
Quarter: 2023Q4

REPORT INFORMATION
  Report Type: Spontaneous
  Country: CA (occurrence: CA)
  Receive Date: 20230726
  Receipt Date: 20231003
  Transmission Date: 20240110
  Serious: No
  Sender: FDA-Public Use
  Company Number: CA-PFIZER INC-202300244285

PATIENT
  Age: 3 Year
  Sex: Male

DRUGS (2)
  1. NGENLA [Suspect]
     Active Substance: SOMATROGON-GHLA
     Indication: Growth hormone deficiency
     Dosage: 0.9 MG, WEEKLY, NEEDLE 32G, 4MM
     Route: 058
     Dates: start: 20230619
  2. NGENLA [Suspect]
     Active Substance: SOMATROGON-GHLA
     Dosage: 8.9 MG, WEEKLY, NEEDLE 32G, 4MM
     Route: 058
     Dates: start: 20230619

REACTIONS (4)
  - Wrong technique in device usage process [Unknown]
  - Needle issue [Unknown]
  - Injection site discomfort [Not Recovered/Not Resolved]
  - Product prescribing error [Unknown]

NARRATIVE: CASE EVENT DATE: 20230101
